FAERS Safety Report 4306829-2 (Version None)
Quarter: 2004Q1

REPORT INFORMATION
  Report Type: 
  Country: None (occurrence: None)
  Receive Date: 20040225
  Receipt Date: 20040209
  Transmission Date: 20041129
  Serious: Yes (Hospitalization)
  Sender: FDA-Public Use
  Company Number: FR_040203580

PATIENT
  Age: 15 Year
  Sex: Male

DRUGS (4)
  1. ZYPREXA [Suspect]
     Indication: AGITATION
     Dosage: 10 MG/DAY
     Dates: start: 20040121
  2. ZYPREXA [Suspect]
     Indication: PSYCHOTIC DISORDER
     Dosage: 10 MG/DAY
     Dates: start: 20040121
  3. DEPAKENE [Concomitant]
  4. VALIUM [Concomitant]

REACTIONS (4)
  - AGITATION [None]
  - FALL [None]
  - FEMUR FRACTURE [None]
  - PROTHROMBIN TIME PROLONGED [None]
